FAERS Safety Report 5373281-8 (Version None)
Quarter: 2007Q2

REPORT INFORMATION
  Report Type: 
  Country: None (occurrence: None)
  Receive Date: 20070626
  Receipt Date: 20070626
  Transmission Date: 20071010
  Serious: Yes (Hospitalization)
  Sender: FDA-Public Use
  Company Number: None

PATIENT
  Sex: Male
  Weight: 81.2 kg

DRUGS (2)
  1. CYTARABINE [Suspect]
     Dosage: 700 MG
  2. DAUNORUBICIN HCL [Suspect]
     Dosage: 135 MG

REACTIONS (2)
  - BLOOD CULTURE POSITIVE [None]
  - PSEUDOMONAS INFECTION [None]
